FAERS Safety Report 7080990-1 (Version None)
Quarter: 2010Q4

REPORT INFORMATION
  Report Type: 
  Country: None (occurrence: None)
  Receive Date: 20101103
  Receipt Date: 20101028
  Transmission Date: 20110411
  Serious: Yes (Death, Hospitalization)
  Sender: FDA-Public Use
  Company Number: BR-ACTELION-A-CH2010-40718

PATIENT
  Sex: Female

DRUGS (4)
  1. BOSENTAN TABLET 125 MG ROW [Suspect]
     Indication: PULMONARY ARTERIAL HYPERTENSION
     Dosage: 125 MG, BID
     Route: 048
  2. BOSENTAN TABLET 125 MG ROW [Suspect]
     Dosage: 62.5 MG, BID
     Route: 048
     Dates: start: 20081201
  3. FUROSEMIDE [Suspect]
     Dosage: UNK
     Dates: start: 20081201
  4. WARFARIN [Suspect]
     Dosage: UNK
     Dates: start: 20081201

REACTIONS (6)
  - COUGH [None]
  - DISEASE PROGRESSION [None]
  - GENERALISED OEDEMA [None]
  - HAEMODYNAMIC INSTABILITY [None]
  - MALAISE [None]
  - PULMONARY ARTERIAL HYPERTENSION [None]
